FAERS Safety Report 8360563-0 (Version None)
Quarter: 2012Q2

REPORT INFORMATION
  Report Type: 
  Country: None (occurrence: None)
  Receive Date: 20120515
  Receipt Date: 20120507
  Transmission Date: 20120825
  Serious: Yes (Other)
  Sender: FDA-Public Use
  Company Number: PHHY2012JP015075

PATIENT
  Age: 37 Year
  Sex: Female

DRUGS (11)
  1. GLEEVEC [Suspect]
     Dosage: UNK UKN, UNK
     Route: 048
     Dates: start: 20090630
  2. PREDNISOLONE [Concomitant]
  3. GLEEVEC [Suspect]
     Indication: CHRONIC MYELOID LEUKAEMIA TRANSFORMATION
     Dosage: 600 MG, DAILY
     Route: 048
     Dates: start: 20090523, end: 20090616
  4. NEORAL [Suspect]
     Dosage: 80 MG, UNK
     Route: 048
  5. IDARUBICIN HYDROCHLORIDE [Suspect]
     Dosage: UNK UKN, UNK
     Dates: start: 20090516, end: 20090518
  6. METHOTREXATE [Suspect]
     Dosage: 15 MG/M2, UNK
  7. NEORAL [Suspect]
     Dosage: 60 MG, UNK
     Route: 048
  8. METHOTREXATE [Suspect]
     Dosage: 10 MG/M2, UNK
  9. METHOTREXATE [Suspect]
     Dosage: 10 MG/M2, UNK
  10. NEORAL [Suspect]
     Dosage: 120 MG, UNK
     Route: 048
     Dates: start: 20100101
  11. CYTARABINE [Suspect]
     Dosage: UNK UKN, UNK
     Dates: start: 20090516, end: 20090522

REACTIONS (7)
  - ACUTE GRAFT VERSUS HOST DISEASE IN SKIN [None]
  - ALANINE AMINOTRANSFERASE INCREASED [None]
  - SUBDURAL HAEMATOMA [None]
  - ASPARTATE AMINOTRANSFERASE INCREASED [None]
  - CHRONIC GRAFT VERSUS HOST DISEASE [None]
  - CYTOMEGALOVIRUS INFECTION [None]
  - HEPATIC FUNCTION ABNORMAL [None]
